FAERS Safety Report 14655157 (Version 1)
Quarter: 2018Q1

REPORT INFORMATION
  Report Type: Spontaneous
  Country: FR (occurrence: FR)
  Receive Date: 20180319
  Receipt Date: 20180319
  Transmission Date: 20180509
  Serious: Yes (Other)
  Sender: FDA-Public Use
  Company Number: FR-MERCK KGAA-2044065

PATIENT
  Age: 53 Year
  Sex: Male

DRUGS (1)
  1. NOVOTHYROX [Suspect]
     Active Substance: LEVOTHYROXINE SODIUM
     Indication: PRODUCT USED FOR UNKNOWN INDICATION

REACTIONS (15)
  - Fatigue [None]
  - Dysstasia [None]
  - Headache [None]
  - Diarrhoea [None]
  - Memory impairment [None]
  - Irritability [None]
  - Nausea [None]
  - Abdominal pain upper [None]
  - Impaired driving ability [None]
  - Depression [None]
  - Disturbance in attention [None]
  - Impaired work ability [Recovered/Resolved]
  - Muscle spasms [None]
  - Dizziness [None]
  - Affective disorder [None]

NARRATIVE: CASE EVENT DATE: 20170816
